FAERS Safety Report 5122621-3 (Version None)
Quarter: 2006Q4

REPORT INFORMATION
  Report Type: 
  Country: None (occurrence: None)
  Receive Date: 20061004
  Receipt Date: 20060921
  Transmission Date: 20070319
  Serious: Yes (Other)
  Sender: FDA-Public Use
  Company Number: 230276

PATIENT
  Sex: Male

DRUGS (4)
  1. RAPTIVA [Suspect]
     Indication: DRUG USE FOR UNKNOWN INDICATION
     Dates: start: 20060519
  2. GRAVOL TAB [Concomitant]
  3. ANTIBIOTICS (ANTIBIOTICS) [Concomitant]
  4. DIMENHYDRINATE [Concomitant]

REACTIONS (3)
  - CHOLECYSTITIS [None]
  - NAUSEA [None]
  - PNEUMONIA [None]
